FAERS Safety Report 17673703 (Version 5)
Quarter: 2021Q3

REPORT INFORMATION
  Report Type: Spontaneous
  Country: SE (occurrence: SE)
  Receive Date: 20200415
  Receipt Date: 20210830
  Transmission Date: 20211014
  Serious: Yes (Death, Hospitalization, Other)
  Sender: FDA-Public Use
  Company Number: SE-PFIZER INC-2020154153

PATIENT
  Age: 62 Year
  Sex: Female

DRUGS (6)
  1. SUTENT [Suspect]
     Active Substance: SUNITINIB MALATE
     Indication: METASTASES TO PLEURA
  2. METOPROLOL. [Concomitant]
     Active Substance: METOPROLOL
     Indication: PALPITATIONS
     Dosage: UNK
     Dates: start: 20200323, end: 20200413
  3. SUTENT [Suspect]
     Active Substance: SUNITINIB MALATE
     Indication: THYMOMA
     Dosage: 50 MG, 1X/DAY, CYCLIC (4:2 SCHEDULE)
     Route: 048
     Dates: start: 20200310, end: 20200409
  4. IMIGRAN [SUMATRIPTAN] [Concomitant]
     Active Substance: SUMATRIPTAN
     Dosage: 1 DF, AS NEEDED
  5. SUTENT [Suspect]
     Active Substance: SUNITINIB MALATE
     Indication: RESPIRATORY TRACT CARCINOMA IN SITU
  6. MESTINON [Concomitant]
     Active Substance: PYRIDOSTIGMINE BROMIDE
     Indication: MYASTHENIA GRAVIS
     Dosage: UNK
     Dates: start: 20191009

REACTIONS (52)
  - Hepatic failure [Fatal]
  - Renal failure [Fatal]
  - Respiratory failure [Fatal]
  - Haemoglobin decreased [Unknown]
  - Neutrophil count decreased [Unknown]
  - Red blood cell count decreased [Unknown]
  - Ejection fraction decreased [Unknown]
  - Multiple organ dysfunction syndrome [Fatal]
  - Cardiac failure acute [Fatal]
  - Skin haemorrhage [Fatal]
  - Blood fibrinogen increased [Unknown]
  - Blood osmolarity increased [Unknown]
  - Haematocrit increased [Unknown]
  - Tri-iodothyronine increased [Unknown]
  - Platelet count decreased [Unknown]
  - Blood thyroid stimulating hormone decreased [Unknown]
  - Product use in unapproved indication [Unknown]
  - Thrombocytopenia [Fatal]
  - Sudden death [Fatal]
  - B-lymphocyte count decreased [Unknown]
  - Blood magnesium increased [Unknown]
  - Mean cell volume abnormal [Unknown]
  - Metamyelocyte count increased [Unknown]
  - Myoglobin blood increased [Unknown]
  - Troponin T increased [Unknown]
  - Aspartate aminotransferase increased [Unknown]
  - Blood albumin decreased [Unknown]
  - Blood calcium decreased [Unknown]
  - Blood phosphorus increased [Unknown]
  - Blood potassium increased [Unknown]
  - Glomerular filtration rate decreased [Unknown]
  - Monocyte count decreased [Unknown]
  - White blood cell count decreased [Unknown]
  - Off label use [Unknown]
  - Coagulopathy [Fatal]
  - Activated partial thromboplastin time prolonged [Unknown]
  - Blood prolactin increased [Unknown]
  - Blood creatine phosphokinase increased [Unknown]
  - Blood creatinine increased [Unknown]
  - Blood urea increased [Unknown]
  - International normalised ratio increased [Unknown]
  - Alanine aminotransferase increased [Unknown]
  - Blood bilirubin increased [Unknown]
  - Hyperthyroidism [Fatal]
  - Hypotension [Unknown]
  - Blood creatine phosphokinase MB increased [Unknown]
  - C-reactive protein increased [Unknown]
  - Thyroxine increased [Unknown]
  - Blood lactate dehydrogenase abnormal [Unknown]
  - Cystatin C abnormal [Unknown]
  - Prohormone brain natriuretic peptide increased [Unknown]
  - Serum ferritin increased [Unknown]

NARRATIVE: CASE EVENT DATE: 20200318
